FAERS Safety Report 8045518 (Version 2)
Quarter: 2013Q1

REPORT INFORMATION
  Report Type: Spontaneous
  Country: US (occurrence: US)
  Receive Date: 20110720
  Receipt Date: 20130114
  Transmission Date: 20140127
  Serious: Yes (Death, Hospitalization)
  Sender: FDA-Public Use
  Company Number: US-GLAXOSMITHKLINE-A0882147A

PATIENT
  Age: 65 Year
  Sex: Male

DRUGS (1)
  1. AVANDIA [Suspect]
     Indication: TYPE 2 DIABETES MELLITUS
     Route: 048
     Dates: start: 200412, end: 200704

REACTIONS (14)
  - Cardiomyopathy [Unknown]
  - Pulmonary haemorrhage [Fatal]
  - Pulmonary hypertension [Fatal]
  - Interstitial lung disease [Fatal]
  - Tracheal obstruction [Fatal]
  - Cardiac failure congestive [Unknown]
  - Bronchial obstruction [Fatal]
  - Tracheal haemorrhage [Fatal]
  - Cor pulmonale [Fatal]
  - Dizziness [Unknown]
  - Cough [Unknown]
  - Traumatic lung injury [Unknown]
  - Fall [Unknown]
  - Dyspnoea [Unknown]
